FAERS Safety Report 24150471 (Version 1)
Quarter: 2024Q3

REPORT INFORMATION
  Report Type: Spontaneous
  Country: CN (occurrence: CN)
  Receive Date: 20240730
  Receipt Date: 20240730
  Transmission Date: 20241017
  Serious: Yes (Death, Life-Threatening, Hospitalization)
  Sender: BEIGENE
  Company Number: CN-SANDOZ INC.-SDZ2024CN005911

PATIENT

DRUGS (28)
  1. TISLELIZUMAB [Suspect]
     Active Substance: TISLELIZUMAB
     Indication: Coronary artery disease
     Dosage: UNK
  2. TISLELIZUMAB [Suspect]
     Active Substance: TISLELIZUMAB
     Indication: Hypertension
  3. TISLELIZUMAB [Suspect]
     Active Substance: TISLELIZUMAB
     Indication: Hypokalaemia
  4. TISLELIZUMAB [Suspect]
     Active Substance: TISLELIZUMAB
     Indication: Non-small cell lung cancer
  5. TISLELIZUMAB [Suspect]
     Active Substance: TISLELIZUMAB
     Indication: Prophylaxis
  6. TISLELIZUMAB [Suspect]
     Active Substance: TISLELIZUMAB
     Indication: Thrombosis prophylaxis
  7. TISLELIZUMAB [Suspect]
     Active Substance: TISLELIZUMAB
     Indication: Thyroid disorder
  8. PEMETREXED [Suspect]
     Active Substance: PEMETREXED
     Indication: Coronary artery disease
  9. PEMETREXED [Suspect]
     Active Substance: PEMETREXED
     Indication: Hypertension
  10. PEMETREXED [Suspect]
     Active Substance: PEMETREXED
     Indication: Hypokalaemia
  11. PEMETREXED [Suspect]
     Active Substance: PEMETREXED
     Indication: Non-small cell lung cancer
  12. PEMETREXED [Suspect]
     Active Substance: PEMETREXED
     Indication: Prophylaxis
  13. PEMETREXED [Suspect]
     Active Substance: PEMETREXED
     Indication: Thrombosis prophylaxis
  14. PEMETREXED [Suspect]
     Active Substance: PEMETREXED
     Indication: Thyroid disorder
  15. CARBOPLATIN [Suspect]
     Active Substance: CARBOPLATIN
     Indication: Coronary artery disease
     Dosage: UNK
  16. CARBOPLATIN [Suspect]
     Active Substance: CARBOPLATIN
     Indication: Hypertension
  17. CARBOPLATIN [Suspect]
     Active Substance: CARBOPLATIN
     Indication: Hypokalaemia
  18. CARBOPLATIN [Suspect]
     Active Substance: CARBOPLATIN
     Indication: Non-small cell lung cancer
  19. CARBOPLATIN [Suspect]
     Active Substance: CARBOPLATIN
     Indication: Prophylaxis
  20. CARBOPLATIN [Suspect]
     Active Substance: CARBOPLATIN
     Indication: Thrombosis prophylaxis
  21. CARBOPLATIN [Suspect]
     Active Substance: CARBOPLATIN
     Indication: Thyroid disorder
  22. ISOSORBIDE MONONITRATE [Concomitant]
     Active Substance: ISOSORBIDE MONONITRATE
  23. LEVOTHYROXINE SODIUM [Concomitant]
     Active Substance: LEVOTHYROXINE SODIUM
  24. METOPROLOL SUCCINATE [Concomitant]
     Active Substance: METOPROLOL SUCCINATE
  25. POTASSIUM CHLORIDE [Concomitant]
     Active Substance: POTASSIUM CHLORIDE
  26. FOSINOPRIL SODIUM [Concomitant]
     Active Substance: FOSINOPRIL SODIUM
  27. ATORVASTATIN CALCIUM [Concomitant]
     Active Substance: ATORVASTATIN CALCIUM
  28. PLAVIX [Concomitant]
     Active Substance: CLOPIDOGREL BISULFATE

REACTIONS (3)
  - Gastrointestinal haemorrhage [Fatal]
  - Hypovolaemic shock [Fatal]
  - Pneumonia [Fatal]

NARRATIVE: CASE EVENT DATE: 20240101
